FAERS Safety Report 8960626 (Version 1)
Quarter: 2012Q4

REPORT INFORMATION
  Report Type: 
  Country: JP (occurrence: JP)
  Receive Date: 20121213
  Receipt Date: 20121213
  Transmission Date: 20130627
  Serious: Yes (Hospitalization, Other)
  Sender: FDA-Public Use
  Company Number: JP-MERCK-2010SP028067

PATIENT
  Age: 62 Year
  Sex: Female

DRUGS (2)
  1. PEG-INTRON [Suspect]
     Indication: CHRONIC HEPATITIS C
     Dosage: 80 Microgram, qw
     Route: 058
  2. REBETOL [Suspect]
     Indication: CHRONIC HEPATITIS C
     Dosage: 600 mg, qd
     Route: 048

REACTIONS (4)
  - Type 1 diabetes mellitus [Recovering/Resolving]
  - Diabetic ketoacidosis [Unknown]
  - Hyperthyroidism [Recovering/Resolving]
  - Hashitoxicosis [Unknown]
